FAERS Safety Report 17007798 (Version 1)
Quarter: 2019Q4

REPORT INFORMATION
  Report Type: Spontaneous
  Country: US (occurrence: US)
  Receive Date: 20191108
  Receipt Date: 20191108
  Transmission Date: 20200122
  Serious: Yes (Other)
  Sender: FDA-Public Use
  Company Number: US-ROCHE-2460433

PATIENT
  Age: 56 Year
  Sex: Male
  Weight: 106.69 kg

DRUGS (3)
  1. XANAX [Concomitant]
     Active Substance: ALPRAZOLAM
  2. LACTULOSE. [Concomitant]
     Active Substance: LACTULOSE
     Dosage: NO
     Route: 065
  3. KLONOPIN [Suspect]
     Active Substance: CLONAZEPAM
     Indication: INSOMNIA
     Route: 048

REACTIONS (13)
  - Hepatic cirrhosis [Not Recovered/Not Resolved]
  - Sleep apnoea syndrome [Unknown]
  - Cardiac disorder [Unknown]
  - Cardiac arrest [Recovered/Resolved]
  - Epilepsy [Unknown]
  - Drug dependence [Not Recovered/Not Resolved]
  - Renal cyst [Not Recovered/Not Resolved]
  - Furuncle [Recovering/Resolving]
  - Ingrown hair [Recovering/Resolving]
  - Cardiac failure congestive [Unknown]
  - Ill-defined disorder [Unknown]
  - Diarrhoea [Unknown]
  - Coma [Recovered/Resolved]

NARRATIVE: CASE EVENT DATE: 201910
